FAERS Safety Report 8569219 (Version 3)
Quarter: 2014Q3

REPORT INFORMATION
  Report Type: Report from Study
  Country: US (occurrence: US)
  Receive Date: 20120518
  Receipt Date: 20140908
  Transmission Date: 20150326
  Serious: No
  Sender: FDA-Public Use
  Company Number: US-ALEXION-A201200605

PATIENT

DRUGS (2)
  1. SOLIRIS [Suspect]
     Active Substance: ECULIZUMAB
     Indication: PAROXYSMAL NOCTURNAL HAEMOGLOBINURIA
     Dosage: UNK
     Route: 042
  2. PREDNISONE. [Suspect]
     Active Substance: PREDNISONE
     Indication: ANXIETY
     Dosage: 10 MG, QD
     Route: 065

REACTIONS (7)
  - Blood lactate dehydrogenase increased [Unknown]
  - Dysphagia [Unknown]
  - Liver function test abnormal [Unknown]
  - Drug dependence [Unknown]
  - Restless legs syndrome [Unknown]
  - Haemoglobinuria [Not Recovered/Not Resolved]
  - Fatigue [Not Recovered/Not Resolved]
